FAERS Safety Report 6109534-5 (Version None)
Quarter: 2009Q1

REPORT INFORMATION
  Report Type: 
  Country: None (occurrence: None)
  Receive Date: 20090306
  Receipt Date: 20090306
  Transmission Date: 20090719
  Serious: No
  Sender: FDA-Public Use
  Company Number: None

PATIENT
  Age: 40 Year
  Sex: Male
  Weight: 90.7194 kg

DRUGS (1)
  1. OXCARBAZEPINE [Suspect]
     Dosage: 600MH AMHS PERIARTICULAR
     Route: 052

REACTIONS (1)
  - HYPONATRAEMIA [None]
